FAERS Safety Report 5191985-7 (Version None)
Quarter: 2006Q4

REPORT INFORMATION
  Report Type: 
  Country: None (occurrence: None)
  Receive Date: 20061227
  Receipt Date: 20061213
  Transmission Date: 20070319
  Serious: Yes (Hospitalization)
  Sender: FDA-Public Use
  Company Number: 2006SE06705

PATIENT
  Age: 19353 Day
  Sex: Female

DRUGS (2)
  1. XYLOCAIN-ADRENALIN [Suspect]
     Indication: LOCAL ANAESTHESIA
     Route: 035
     Dates: start: 20061114, end: 20061114
  2. CELESTON CHRONODOSE [Concomitant]
     Dates: start: 20061114, end: 20061114

REACTIONS (8)
  - ANAPHYLACTIC REACTION [None]
  - DIZZINESS [None]
  - FEELING COLD [None]
  - HYPERVENTILATION [None]
  - HYPOAESTHESIA [None]
  - LOSS OF CONSCIOUSNESS [None]
  - MALAISE [None]
  - NYSTAGMUS [None]
